FAERS Safety Report 14055892 (Version 1)
Quarter: 2017Q4

REPORT INFORMATION
  Report Type: Spontaneous
  Country: NL (occurrence: NL)
  Receive Date: 20171006
  Receipt Date: 20171006
  Transmission Date: 20180321
  Serious: Yes (Death, Hospitalization)
  Sender: FDA-Public Use
  Company Number: NL-JNJFOC-20171002664

PATIENT
  Age: 61 Year
  Sex: Female

DRUGS (1)
  1. IMBRUVICA [Suspect]
     Active Substance: IBRUTINIB
     Indication: CHRONIC LYMPHOCYTIC LEUKAEMIA
     Route: 048
     Dates: start: 20170407, end: 201707

REACTIONS (5)
  - Systemic candida [Fatal]
  - Incorrect dose administered [Unknown]
  - Brain stem infarction [Fatal]
  - Off label use [Unknown]
  - Leukopenia [Unknown]

NARRATIVE: CASE EVENT DATE: 201707
